FAERS Safety Report 17019830 (Version 3)
Quarter: 2020Q3

REPORT INFORMATION
  Report Type: Report from Study
  Country: FR (occurrence: FR)
  Receive Date: 20191112
  Receipt Date: 20200811
  Transmission Date: 20201102
  Serious: Yes (Death, Hospitalization, Other)
  Sender: FDA-Public Use
  Company Number: FR-AUROBINDO-AUR-APL-2019-072256

PATIENT
  Age: 79 Year
  Sex: Male

DRUGS (3)
  1. PRAVASTATIN. [Interacting]
     Active Substance: PRAVASTATIN
     Indication: PRODUCT USED FOR UNKNOWN INDICATION
     Dosage: UNK
     Route: 065
  2. AMIODARONE [Suspect]
     Active Substance: AMIODARONE
     Indication: PRODUCT USED FOR UNKNOWN INDICATION
     Dosage: UNK
     Route: 065
  3. XARELTO [Interacting]
     Active Substance: RIVAROXABAN
     Indication: ATRIAL FIBRILLATION
     Dosage: 15 MILLIGRAM, ONCE A DAY
     Route: 065

REACTIONS (6)
  - Oedema [Fatal]
  - Brain oedema [Fatal]
  - Drug interaction [Unknown]
  - Cerebral haematoma [Unknown]
  - Haemorrhage intracranial [Fatal]
  - Renal failure [Unknown]
